FAERS Safety Report 5189908-X (Version None)
Quarter: 2006Q4

REPORT INFORMATION
  Report Type: 
  Country: None (occurrence: None)
  Receive Date: 20061218
  Receipt Date: 20061204
  Transmission Date: 20070319
  Serious: Yes (Hospitalization, Other)
  Sender: FDA-Public Use
  Company Number: GXKR2006GB07941

PATIENT
  Sex: Male

DRUGS (4)
  1. ASPIRIN [Suspect]
     Dosage: 75 MG, QD, ORAL
     Route: 048
     Dates: end: 20061014
  2. FINASTERIDE [Concomitant]
  3. IRBESARTAN [Concomitant]
  4. TAMSULOSIN HCL [Concomitant]

REACTIONS (5)
  - DUODENAL ULCER [None]
  - FAECES DISCOLOURED [None]
  - HAEMOGLOBIN DECREASED [None]
  - LETHARGY [None]
  - SYNCOPE [None]
